FAERS Safety Report 4538895-3 (Version None)
Quarter: 2004Q4

REPORT INFORMATION
  Report Type: 
  Country: None (occurrence: None)
  Receive Date: 20041227
  Receipt Date: 20041217
  Transmission Date: 20050328
  Serious: Yes (Hospitalization)
  Sender: FDA-Public Use
  Company Number: NL-ABBOTT-04P-114-0284102-00

PATIENT
  Sex: Male

DRUGS (12)
  1. NORVIR [Suspect]
     Indication: HIV INFECTION
     Dates: start: 20031201
  2. ATAZANAVIR [Suspect]
     Indication: HIV INFECTION
     Route: 048
     Dates: start: 20031201
  3. SAQUINAVIR MESILATE [Interacting]
     Indication: DRUG USE FOR UNKNOWN INDICATION
     Dates: start: 20040310, end: 20040325
  4. ENFUVIRTIDE [Concomitant]
     Indication: DRUG USE FOR UNKNOWN INDICATION
     Dates: start: 20020722
  5. DIDANOSINE [Concomitant]
     Indication: DRUG USE FOR UNKNOWN INDICATION
     Dates: start: 20020102
  6. FUZEON [Concomitant]
     Indication: DRUG USE FOR UNKNOWN INDICATION
  7. DAPSONE [Concomitant]
     Indication: DRUG USE FOR UNKNOWN INDICATION
  8. PYRIMETHAMINE TAB [Concomitant]
     Indication: DRUG USE FOR UNKNOWN INDICATION
  9. FOLIC ACID [Concomitant]
     Indication: DRUG USE FOR UNKNOWN INDICATION
  10. SUSTANON [Concomitant]
     Indication: DRUG USE FOR UNKNOWN INDICATION
  11. TEMAZEPAM [Concomitant]
     Indication: DRUG USE FOR UNKNOWN INDICATION
  12. TESTOSTERONE [Concomitant]

REACTIONS (14)
  - ANOREXIA [None]
  - DRUG EFFECT DECREASED [None]
  - DRUG INEFFECTIVE [None]
  - DRUG INTERACTION [None]
  - GENERAL PHYSICAL HEALTH DETERIORATION [None]
  - GLOMERULONEPHROPATHY [None]
  - HAEMOGLOBIN DECREASED [None]
  - ISCHAEMIA [None]
  - LIPODYSTROPHY ACQUIRED [None]
  - NEPHROPATHY TOXIC [None]
  - NOCTURIA [None]
  - RENAL FAILURE [None]
  - RENAL TUBULAR NECROSIS [None]
  - WEIGHT DECREASED [None]
